FAERS Safety Report 7720524-9 (Version None)
Quarter: 2011Q3

REPORT INFORMATION
  Report Type: 
  Country: None (occurrence: None)
  Receive Date: 20110831
  Receipt Date: 20110831
  Transmission Date: 20111222
  Serious: Yes (Hospitalization, Other)
  Sender: FDA-Public Use
  Company Number: None

PATIENT
  Age: 65 Year
  Sex: Female
  Weight: 75 kg

DRUGS (6)
  1. HEPARIN [Suspect]
     Indication: ISCHAEMIC STROKE
     Dosage: PER PPT
     Route: 041
  2. FAMOTIDINE [Concomitant]
     Route: 042
  3. SLIDING SCALE INSULIN [Concomitant]
     Route: 058
  4. DOCUSATE CALCIUM [Concomitant]
     Route: 048
  5. NYSTATIN [Concomitant]
     Route: 061
  6. SIMAVASTATIN [Concomitant]
     Route: 048

REACTIONS (6)
  - BRAIN MIDLINE SHIFT [None]
  - ATRIAL FIBRILLATION [None]
  - CEREBRAL HAEMATOMA [None]
  - URINARY TRACT INFECTION [None]
  - ACUTE MYOCARDIAL INFARCTION [None]
  - BRAIN OEDEMA [None]
